FAERS Safety Report 9160764 (Version 2)
Quarter: 2013Q2

REPORT INFORMATION
  Report Type: Spontaneous
  Country: JP (occurrence: JP)
  Receive Date: 20130313
  Receipt Date: 20130404
  Transmission Date: 20140414
  Serious: Yes (Hospitalization)
  Sender: FDA-Public Use
  Company Number: JP-B.I. PHARMACEUTICALS,INC./RIDGEFIELD-2013-BI-06379NB

PATIENT
  Age: 77 Year
  Sex: Male

DRUGS (2)
  1. PERSANTIN-L [Suspect]
     Dosage: 300 MG
     Route: 048
  2. BUFFERIN 81MG [Concomitant]
     Dosage: 81 MG
     Route: 048

REACTIONS (1)
  - Fracture [Not Recovered/Not Resolved]
